FAERS Safety Report 23937361 (Version 1)
Quarter: 2024Q2

REPORT INFORMATION
  Report Type: Spontaneous
  Country: US (occurrence: US)
  Receive Date: 20240604
  Receipt Date: 20240604
  Transmission Date: 20240716
  Serious: No
  Sender: FDA-Public Use
  Company Number: US-PFIZER INC-PV202400072354

PATIENT

DRUGS (3)
  1. NURTEC ODT [Suspect]
     Active Substance: RIMEGEPANT SULFATE
     Indication: Migraine with aura
     Dosage: AS NEEDED
  2. AIMOVIG [Suspect]
     Active Substance: ERENUMAB-AOOE
     Indication: Migraine with aura
     Dosage: MONTHLY
  3. TOPIRAMATE [Suspect]
     Active Substance: TOPIRAMATE
     Indication: Migraine with aura
     Dosage: UNK, 2X/DAY

REACTIONS (2)
  - Drug ineffective [Unknown]
  - Intentional product misuse [Unknown]
